FAERS Safety Report 8119164-1 (Version None)
Quarter: 2012Q1

REPORT INFORMATION
  Report Type: 
  Country: None (occurrence: None)
  Receive Date: 20120207
  Receipt Date: 20120206
  Transmission Date: 20120608
  Serious: Yes (Death)
  Sender: FDA-Public Use
  Company Number: GB-ROCHE-1037162

PATIENT
  Sex: Male
  Weight: 88 kg

DRUGS (3)
  1. MABTHERA [Suspect]
     Indication: PRODUCT USED FOR UNKNOWN INDICATION
     Dates: start: 20110303
  2. STEROIDS NOS [Concomitant]
  3. SULFASALAZINE [Concomitant]

REACTIONS (3)
  - URINARY TRACT INFECTION [None]
  - LARGE GRANULAR LYMPHOCYTOSIS [None]
  - LEFT VENTRICULAR FAILURE [None]
